FAERS Safety Report 8102373-5 (Version None)
Quarter: 2012Q1

REPORT INFORMATION
  Report Type: 
  Country: None (occurrence: None)
  Receive Date: 20120201
  Receipt Date: 20120126
  Transmission Date: 20120608
  Serious: No
  Sender: FDA-Public Use
  Company Number: US-PFIZER INC-2012022656

PATIENT
  Age: 79 Year
  Sex: Female
  Weight: 46.712 kg

DRUGS (1)
  1. LYRICA [Suspect]
     Indication: TRIGEMINAL NEURALGIA
     Dosage: 75 MG, 2X/DAY
     Dates: end: 20120108

REACTIONS (6)
  - DIZZINESS [None]
  - VOMITING [None]
  - DRY MOUTH [None]
  - DRUG INEFFECTIVE [None]
  - DIARRHOEA [None]
  - SLEEP DISORDER [None]
